FAERS Safety Report 8463142-X (Version None)
Quarter: 2012Q2

REPORT INFORMATION
  Report Type: 
  Country: None (occurrence: None)
  Receive Date: 20120625
  Receipt Date: 20120615
  Transmission Date: 20120825
  Serious: Yes (Hospitalization)
  Sender: FDA-Public Use
  Company Number: FR-VERTEX PHARMACEUTICALS INC.-AE-2011-004445

PATIENT
  Sex: Male
  Weight: 81 kg

DRUGS (8)
  1. RIBAVIRIN [Concomitant]
     Indication: HEPATITIS C
     Route: 048
     Dates: start: 20110916
  2. VX-950 [Suspect]
     Indication: HEPATITIS C
     Route: 048
     Dates: start: 20110916, end: 20111118
  3. ESCITALOPRAM [Concomitant]
     Indication: DEPRESSION
  4. RIBAVIRIN [Concomitant]
     Route: 048
  5. IMOVANE [Concomitant]
     Indication: INSOMNIA
     Dates: start: 20110916
  6. PEGINTERFERON ALFA-2A [Concomitant]
     Route: 058
     Dates: start: 20111202
  7. PEGINTERFERON ALFA-2A [Concomitant]
     Indication: HEPATITIS C
     Route: 058
     Dates: start: 20110916, end: 20111118
  8. IMOVANE [Concomitant]
     Indication: DEPRESSION

REACTIONS (4)
  - ECZEMA [None]
  - STAPHYLOCOCCAL INFECTION [None]
  - VASCULITIS [None]
  - PURPURA [None]
